FAERS Safety Report 7231792-4 (Version None)
Quarter: 2011Q1

REPORT INFORMATION
  Report Type: 
  Country: None (occurrence: None)
  Receive Date: 20110107
  Receipt Date: 20101224
  Transmission Date: 20110831
  Serious: Yes (Other)
  Sender: FDA-Public Use
  Company Number: CIP10003213

PATIENT
  Age: 73 Year
  Sex: Female

DRUGS (1)
  1. ENABLEX [Suspect]
     Dosage: 15 MG, DAILY, ORAL
     Route: 048

REACTIONS (2)
  - FEMUR FRACTURE [None]
  - FALL [None]
